FAERS Safety Report 19381913 (Version 1)
Quarter: 2021Q2

REPORT INFORMATION
  Report Type: Spontaneous
  Country: US (occurrence: US)
  Receive Date: 20210607
  Receipt Date: 20210607
  Transmission Date: 20210717
  Serious: Yes (Other)
  Sender: FDA-Public Use
  Company Number: US-SA-2021SA182510

PATIENT
  Age: 36 Year
  Sex: Female

DRUGS (1)
  1. ZANTAC [Suspect]
     Active Substance: RANITIDINE HYDROCHLORIDE
     Indication: EROSIVE OESOPHAGITIS
     Dosage: 75 MG, QD
     Dates: start: 198201, end: 201001

REACTIONS (4)
  - Skin cancer [Unknown]
  - Lymphadenopathy [Unknown]
  - Breast cancer stage III [Unknown]
  - Lymphoedema [Unknown]

NARRATIVE: CASE EVENT DATE: 19880101
